FAERS Safety Report 23225005 (Version 1)
Quarter: 2023Q4

REPORT INFORMATION
  Report Type: Report from Study
  Country: US (occurrence: US)
  Receive Date: 20231124
  Receipt Date: 20231124
  Transmission Date: 20240109
  Serious: Yes (Other)
  Sender: FDA-Public Use
  Company Number: US-ABBVIE-5504179

PATIENT
  Sex: Male

DRUGS (1)
  1. RINVOQ [Suspect]
     Active Substance: UPADACITINIB
     Indication: Psoriatic arthropathy
     Route: 048
     Dates: start: 20230308

REACTIONS (7)
  - Atrioventricular block [Unknown]
  - Arthritis [Unknown]
  - Neuralgia [Unknown]
  - Throat tightness [Unknown]
  - Dyspnoea [Unknown]
  - Haemoptysis [Unknown]
  - Neurological symptom [Unknown]

NARRATIVE: CASE EVENT DATE: 20230101
